FAERS Safety Report 4642749-1 (Version None)
Quarter: 2005Q2

REPORT INFORMATION
  Report Type: 
  Country: None (occurrence: None)
  Receive Date: 20050420
  Receipt Date: 20050331
  Transmission Date: 20051028
  Serious: Yes (Hospitalization, Other)
  Sender: FDA-Public Use
  Company Number: FRWYE545831MAR05

PATIENT
  Age: 84 Year
  Sex: Female

DRUGS (5)
  1. BISOPROLOL FUMARATE [Suspect]
     Indication: ANGINA PECTORIS
     Dosage: ORAL
     Route: 048
     Dates: end: 20050106
  2. THALIDOMIDE (THALIDOMIDE, , 0) [Suspect]
     Indication: MULTIPLE MYELOMA
     Dosage: 100 MG 1X PER 1 DAY ORAL
     Route: 048
     Dates: start: 20041115, end: 20050107
  3. DIGOXIN [Concomitant]
  4. PREVISCAN (FLUINDIONE) [Concomitant]
  5. FUROSEMIDE [Concomitant]

REACTIONS (2)
  - LEUKOPENIA [None]
  - NEUTROPENIA [None]
